FAERS Safety Report 23691300 (Version 1)
Quarter: 2024Q2

REPORT INFORMATION
  Report Type: Spontaneous
  Country: US (occurrence: None)
  Receive Date: 20240401
  Receipt Date: 20240401
  Transmission Date: 20240716
  Serious: No
  Sender: FDA-Public Use
  Company Number: 2024A062564

PATIENT
  Age: 50 Year

DRUGS (3)
  1. BUDESONIDE\FORMOTEROL [Suspect]
     Active Substance: BUDESONIDE\FORMOTEROL
     Dosage: TWO TIMES A DAY
     Route: 055
     Dates: start: 20240312
  2. SYMBICORT [Suspect]
     Active Substance: BUDESONIDE\FORMOTEROL FUMARATE DIHYDRATE
     Dosage: UNKNOWN UNKNOWN
     Route: 055
     Dates: start: 2015
  3. ALCOHOL [Concomitant]
     Active Substance: ALCOHOL

REACTIONS (7)
  - Oropharyngeal discomfort [Unknown]
  - Throat tightness [Unknown]
  - Drug ineffective [Unknown]
  - Allergy to plants [Unknown]
  - Throat irritation [Unknown]
  - Food allergy [Unknown]
  - Swelling [Unknown]

NARRATIVE: CASE EVENT DATE: 20240301
